FAERS Safety Report 7417687-1 (Version None)
Quarter: 2011Q2

REPORT INFORMATION
  Report Type: 
  Country: None (occurrence: None)
  Receive Date: 20110415
  Receipt Date: 20110411
  Transmission Date: 20111010
  Serious: Yes (Other)
  Sender: FDA-Public Use
  Company Number: US-PFIZER INC-2011079806

PATIENT
  Sex: Female
  Weight: 56.689 kg

DRUGS (2)
  1. PREMARIN [Suspect]
     Indication: HORMONE REPLACEMENT THERAPY
     Dosage: MULTIPLE DOSAGES
     Dates: start: 19600101
  2. SYNTHROID [Concomitant]
     Dosage: UNK

REACTIONS (8)
  - INSOMNIA [None]
  - BREAST CANCER [None]
  - IRRITABILITY [None]
  - HOT FLUSH [None]
  - DRY SKIN [None]
  - BLOOD CHOLESTEROL INCREASED [None]
  - POLLAKIURIA [None]
  - WRONG TECHNIQUE IN DRUG USAGE PROCESS [None]
